FAERS Safety Report 14205231 (Version 1)
Quarter: 2017Q4

REPORT INFORMATION
  Report Type: Spontaneous
  Country: FR (occurrence: LU)
  Receive Date: 20171120
  Receipt Date: 20171120
  Transmission Date: 20180321
  Serious: Yes (Life-Threatening, Hospitalization)
  Sender: FDA-Public Use
  Company Number: LU-FRESENIUS KABI-FK201709928

PATIENT
  Age: 78 Year
  Sex: Female

DRUGS (1)
  1. CEFUROXIM FRESENIUS [Suspect]
     Active Substance: CEFUROXIME
     Indication: INFECTION
     Route: 042
     Dates: start: 20170831, end: 20170831

REACTIONS (1)
  - Anaphylactic shock [Recovered/Resolved]

NARRATIVE: CASE EVENT DATE: 20170831
